FAERS Safety Report 23920132 (Version 1)
Quarter: 2024Q2

REPORT INFORMATION
  Report Type: Spontaneous
  Country: US (occurrence: None)
  Receive Date: 20240530
  Receipt Date: 20240530
  Transmission Date: 20240716
  Serious: No
  Sender: FDA-Public Use
  Company Number: None

PATIENT

DRUGS (3)
  1. HUMALOG MIX75/25 [Suspect]
     Active Substance: INSULIN LISPRO
  2. HUMALOG PEN [Suspect]
     Active Substance: INSULIN LISPRO
  3. HUMALOG MIX50/50 [Suspect]
     Active Substance: INSULIN LISPRO

REACTIONS (5)
  - Product packaging confusion [None]
  - Product label confusion [None]
  - Wrong product administered [None]
  - Hypoglycaemia [None]
  - Product name confusion [None]
